FAERS Safety Report 9269325 (Version 1)
Quarter: 2013Q2

REPORT INFORMATION
  Report Type: Report from Study
  Country: CZ (occurrence: CZ)
  Receive Date: 20130503
  Receipt Date: 20130503
  Transmission Date: 20140414
  Serious: Yes (Other)
  Sender: FDA-Public Use
  Company Number: CZ-ROCHE-1219965

PATIENT
  Sex: Female

DRUGS (1)
  1. RANIBIZUMAB [Suspect]
     Indication: AGE-RELATED MACULAR DEGENERATION
     Route: 050
     Dates: start: 20110307, end: 20110307

REACTIONS (1)
  - Subretinal fibrosis [Recovered/Resolved with Sequelae]
